FAERS Safety Report 6355648-4 (Version None)
Quarter: 2009Q3

REPORT INFORMATION
  Report Type: 
  Country: None (occurrence: None)
  Receive Date: 20090910
  Receipt Date: 20090828
  Transmission Date: 20100115
  Serious: Yes (Hospitalization)
  Sender: FDA-Public Use
  Company Number: DK-GDP-09406538

PATIENT
  Age: 15 Year
  Sex: Male

DRUGS (2)
  1. DIFFERIN [Suspect]
     Dosage: TOPICAL
     Route: 061
  2. ERYTHROMYCIN [Suspect]
     Dosage: 250 MG, QD, ORAL
     Route: 048

REACTIONS (2)
  - ACUTE HEPATIC FAILURE [None]
  - INTERNATIONAL NORMALISED RATIO INCREASED [None]
